FAERS Safety Report 10597126 (Version 1)
Quarter: 2014Q4

REPORT INFORMATION
  Report Type: Spontaneous
  Country: FR (occurrence: FR)
  Receive Date: 20141121
  Receipt Date: 20141121
  Transmission Date: 20150529
  Serious: Yes (Death)
  Sender: FDA-Public Use
  Company Number: FR-ROCHE-1493453

PATIENT
  Sex: Female

DRUGS (25)
  1. EUPRESSYL [Concomitant]
     Active Substance: URAPIDIL
     Route: 065
  2. SIMVASTATINE [Concomitant]
     Active Substance: SIMVASTATIN
  3. NOVONORM [Concomitant]
     Active Substance: REPAGLINIDE
     Route: 065
  4. NOVOMIX [Concomitant]
     Active Substance: INSULIN ASPART
     Route: 065
  5. LASILIX [Concomitant]
     Active Substance: FUROSEMIDE
     Route: 065
  6. AMLOR [Concomitant]
     Active Substance: AMLODIPINE BESYLATE
     Route: 065
  7. LASILIX [Concomitant]
     Active Substance: FUROSEMIDE
     Route: 065
  8. BICARBONATE [Concomitant]
     Active Substance: BICARBONATE ION
     Route: 065
  9. ECONAZOLE [Concomitant]
     Active Substance: ECONAZOLE
     Route: 065
  10. HERCEPTIN [Suspect]
     Active Substance: TRASTUZUMAB
     Indication: INVASIVE DUCTAL BREAST CARCINOMA
     Route: 042
     Dates: start: 20140526, end: 20140526
  11. PLAVIX [Concomitant]
     Active Substance: CLOPIDOGREL BISULFATE
     Route: 065
  12. SEROPRAM [Concomitant]
     Active Substance: CITALOPRAM HYDROBROMIDE
     Route: 065
  13. ADENURIC [Concomitant]
     Active Substance: FEBUXOSTAT
     Route: 065
  14. SALBUTAMOL [Concomitant]
     Active Substance: ALBUTEROL
     Dosage: NEBULISATION WITH SALBUTAMOL 2.5 MG/8H
     Route: 065
  15. DUPHALAC [Concomitant]
     Active Substance: LACTULOSE
  16. VESICARE [Concomitant]
     Active Substance: SOLIFENACIN SUCCINATE
     Route: 065
  17. IPRATROPIUM [Concomitant]
     Active Substance: IPRATROPIUM
     Dosage: 0.5MG/ 6H
     Route: 065
  18. POLARAMINE [Concomitant]
     Active Substance: DEXCHLORPHENIRAMINE MALEATE
     Route: 042
  19. TRANXENE T-TAB [Concomitant]
     Active Substance: CLORAZEPATE DIPOTASSIUM
     Route: 065
  20. DETENSIEL [Concomitant]
     Active Substance: BISOPROLOL FUMARATE
     Route: 065
  21. TARDYFERON (FRANCE) [Concomitant]
  22. LORAMYC [Concomitant]
     Active Substance: MICONAZOLE
     Route: 065
  23. BUDESONIDE. [Concomitant]
     Active Substance: BUDESONIDE
     Dosage: 0.5MG/8H
     Route: 065
  24. SOLU-MEDROL [Concomitant]
     Active Substance: METHYLPREDNISOLONE SODIUM SUCCINATE
     Route: 065
  25. SOLU-MEDROL [Concomitant]
     Active Substance: METHYLPREDNISOLONE SODIUM SUCCINATE
     Route: 065

REACTIONS (2)
  - Respiratory distress [Fatal]
  - Bronchospasm [Fatal]

NARRATIVE: CASE EVENT DATE: 20140526
